FAERS Safety Report 8139857-X (Version None)
Quarter: 2012Q1

REPORT INFORMATION
  Report Type: 
  Country: None (occurrence: None)
  Receive Date: 20120215
  Receipt Date: 20120214
  Transmission Date: 20120608
  Serious: Yes (Death)
  Sender: FDA-Public Use
  Company Number: JP-ABBOTT-11P-087-0869291-00

PATIENT
  Sex: Male
  Weight: 49.5 kg

DRUGS (7)
  1. HUMIRA [Suspect]
     Dates: start: 20110512, end: 20110512
  2. LOXOPROFEN SODIUM HYDRATE [Concomitant]
     Indication: PAIN
     Dosage: 60-180 MG, AS REQUIRED
     Route: 048
  3. MESALAMINE [Concomitant]
     Indication: CROHN'S DISEASE
     Route: 048
  4. HUMIRA [Suspect]
     Indication: CROHN'S DISEASE
     Route: 058
     Dates: start: 20110427, end: 20110427
  5. HUMIRA [Suspect]
     Dates: start: 20110525, end: 20120104
  6. REBAMIPIDE [Concomitant]
     Indication: PROPHYLAXIS
     Route: 048
  7. FERROUS CITRATE [Concomitant]
     Indication: ANAEMIA
     Route: 048

REACTIONS (2)
  - ABDOMINAL DISCOMFORT [None]
  - MYOCARDIAL INFARCTION [None]
